FAERS Safety Report 20454511 (Version 5)
Quarter: 2022Q2

REPORT INFORMATION
  Report Type: Report from Study
  Country: US (occurrence: US)
  Receive Date: 20220210
  Receipt Date: 20220407
  Transmission Date: 20220721
  Serious: Yes (Other)
  Sender: FDA-Public Use
  Company Number: NVSC2022US026141

PATIENT
  Sex: Male

DRUGS (1)
  1. ENTRESTO [Suspect]
     Active Substance: SACUBITRIL\VALSARTAN
     Indication: Product used for unknown indication
     Dosage: 1 DOSAGE FORM, BID (49/51 MG)
     Route: 065

REACTIONS (12)
  - Cataract [Unknown]
  - Head injury [Unknown]
  - Decreased activity [Unknown]
  - Pain in extremity [Unknown]
  - Fall [Unknown]
  - Blood pressure abnormal [Unknown]
  - Cough [Unknown]
  - Limb discomfort [Unknown]
  - Neuralgia [Unknown]
  - Pain [Unknown]
  - Inappropriate schedule of product administration [Unknown]
  - Product dose omission issue [Unknown]
